FAERS Safety Report 10089524 (Version 2)
Quarter: 2014Q2

REPORT INFORMATION
  Report Type: Spontaneous
  Country: JP (occurrence: JP)
  Receive Date: 20140421
  Receipt Date: 20140501
  Transmission Date: 20141212
  Serious: Yes (Hospitalization)
  Sender: FDA-Public Use
  Company Number: JP-B.I. PHARMACEUTICALS,INC./RIDGEFIELD-2014-BI-17833NB

PATIENT
  Age: 74 Year
  Sex: Female

DRUGS (5)
  1. TRAZENTA [Suspect]
     Indication: DIABETES MELLITUS
     Dosage: 5 MG
     Route: 048
     Dates: end: 20140409
  2. URSO / URSODEOXYCHOLIC ACID [Concomitant]
     Dosage: 600 MG
     Route: 048
  3. BAYASPIRIN / ASPIRIN [Concomitant]
     Dosage: 100 MG
     Route: 048
  4. PLAVIX / CLOPIDOGREL SULFATE [Concomitant]
     Dosage: 75 MG
     Route: 048
  5. CRESTOR / ROSUVASTATIN CALCIUM [Concomitant]
     Dosage: 20 MG
     Route: 048

REACTIONS (1)
  - Pancreatitis acute [Recovered/Resolved]
